FAERS Safety Report 6790021 (Version 10)
Quarter: 2013Q3

REPORT INFORMATION
  Report Type: Spontaneous
  Country: US (occurrence: US)
  Receive Date: 20081017
  Receipt Date: 20130809
  Transmission Date: 20140515
  Serious: Yes (Hospitalization, Other)
  Sender: FDA-Public Use
  Company Number: US-ROCHE-552269

PATIENT
  Sex: Male
  Weight: 70.37 kg

DRUGS (2)
  1. ACCUTANE [Suspect]
     Indication: ACNE
     Route: 065
     Dates: start: 19830617, end: 19830923
  2. ACCUTANE [Suspect]
     Dosage: 2 ONE DAY, 1 THE NEXT
     Route: 065
     Dates: start: 19830924, end: 19831111

REACTIONS (12)
  - Colitis ulcerative [Not Recovered/Not Resolved]
  - Hernia [Unknown]
  - Inflammatory bowel disease [Unknown]
  - Crohn^s disease [Unknown]
  - Depression [Unknown]
  - Anal stenosis [Unknown]
  - Small intestinal obstruction [Unknown]
  - Arthritis [Unknown]
  - Pouchitis [Recovering/Resolving]
  - Rheumatoid arthritis [Not Recovered/Not Resolved]
  - Irritable bowel syndrome [Unknown]
  - Rash macular [Unknown]
